FAERS Safety Report 5810807-1 (Version None)
Quarter: 2008Q3

REPORT INFORMATION
  Report Type: 
  Country: None (occurrence: None)
  Receive Date: 20080709
  Receipt Date: 20080625
  Transmission Date: 20090109
  Serious: Yes (Death)
  Sender: FDA-Public Use
  Company Number: 2008AL007853

PATIENT
  Age: 66 Year
  Sex: Female

DRUGS (5)
  1. ALPRAZOLAM [Suspect]
  2. PAREGORIC LIQUID USP (ALPHARMA) (PAREGORIC LIQUID USP (ALPHARMA)) [Suspect]
     Dosage: PO
     Route: 048
  3. FEVERALL [Suspect]
     Dosage: PO
     Route: 048
  4. DIAZEPAM [Suspect]
  5. CODEINE SUL TAB [Concomitant]

REACTIONS (2)
  - DRUG ABUSE [None]
  - DRUG TOXICITY [None]
